FAERS Safety Report 11619310 (Version 1)
Quarter: 2015Q4

REPORT INFORMATION
  Report Type: Spontaneous
  Country: GR (occurrence: GR)
  Receive Date: 20151012
  Receipt Date: 20151012
  Transmission Date: 20160304
  Serious: Yes (Other)
  Sender: FDA-Public Use
  Company Number: GR-TEVA-600651ISR

PATIENT
  Age: 68 Year
  Sex: Male

DRUGS (3)
  1. CICLOSPORIN [Suspect]
     Active Substance: CYCLOSPORINE
     Indication: PSORIASIS
     Dosage: FOR 2 MONTHS
     Route: 065
  2. ADALIMUMAB [Suspect]
     Active Substance: ADALIMUMAB
     Indication: PSORIASIS
     Dosage: FOR 15 MONTHS
     Route: 065
  3. METHOTREXATE [Suspect]
     Active Substance: METHOTREXATE
     Indication: PSORIASIS
     Dosage: FOR 7 MONTHS
     Route: 065

REACTIONS (3)
  - Mycosis fungoides stage I [Recovering/Resolving]
  - Hepatotoxicity [Unknown]
  - Gingival hyperplasia [Unknown]
